FAERS Safety Report 8186892-1 (Version None)
Quarter: 2012Q1

REPORT INFORMATION
  Report Type: 
  Country: None (occurrence: None)
  Receive Date: 20120305
  Receipt Date: 20120214
  Transmission Date: 20120608
  Serious: Yes (Death, Hospitalization)
  Sender: FDA-Public Use
  Company Number: 20120100

PATIENT
  Age: 54 Year
  Sex: Male

DRUGS (4)
  1. DEXAMETHASONE SODIUM PHOSPHATE [Suspect]
     Indication: BRAIN OEDEMA
  2. DAPSONE [Suspect]
     Indication: PROPHYLAXIS
  3. PYRIMETHAMINE TAB [Suspect]
     Indication: TOXOPLASMOSIS
  4. CLINDAMYCIN [Suspect]
     Indication: TOXOPLASMOSIS

REACTIONS (8)
  - EYELID PTOSIS [None]
  - NUCLEAR MAGNETIC RESONANCE IMAGING BRAIN ABNORMAL [None]
  - ZYGOMYCOSIS [None]
  - PANCYTOPENIA [None]
  - EXOPHTHALMOS [None]
  - OPHTHALMOPLEGIA [None]
  - TOXICITY TO VARIOUS AGENTS [None]
  - BLINDNESS UNILATERAL [None]
